FAERS Safety Report 5228525-X (Version None)
Quarter: 2007Q1

REPORT INFORMATION
  Report Type: 
  Country: None (occurrence: None)
  Receive Date: 20070205
  Receipt Date: 20070126
  Transmission Date: 20070707
  Serious: Yes (Hospitalization, Other)
  Sender: FDA-Public Use
  Company Number: FR-AVENTIS-200614418FR

PATIENT
  Age: 74 Year
  Sex: Male
  Weight: 71 kg

DRUGS (8)
  1. ARAVA [Suspect]
     Indication: RHEUMATOID ARTHRITIS
     Route: 048
     Dates: start: 20011212, end: 20021201
  2. ARAVA [Suspect]
     Route: 048
     Dates: start: 20021201, end: 20060901
  3. ARAVA [Suspect]
     Route: 048
     Dates: start: 20060901, end: 20061201
  4. KERLONE                            /00706301/ [Concomitant]
     Indication: HYPERTENSION
     Route: 048
  5. LOGIMAX [Concomitant]
     Route: 048
  6. CORTANCYL [Concomitant]
     Indication: RHEUMATOID ARTHRITIS
     Route: 048
     Dates: start: 20060914, end: 20060920
  7. EUPANTOL                           /01263201/ [Concomitant]
     Route: 048
     Dates: start: 20060914, end: 20060920
  8. PIASCLEDINE                        /01305801/ [Concomitant]
     Indication: OSTEOARTHRITIS
     Route: 048
     Dates: start: 20060222

REACTIONS (2)
  - COLON CANCER [None]
  - MESOTHELIOMA [None]
